FAERS Safety Report 7907119-9 (Version None)
Quarter: 2011Q4

REPORT INFORMATION
  Report Type: 
  Country: None (occurrence: None)
  Receive Date: 20111110
  Receipt Date: 20110503
  Transmission Date: 20120403
  Serious: No
  Sender: FDA-Public Use
  Company Number: US-ASTRAZENECA-2011SE26749

PATIENT
  Age: 50 Year
  Sex: Male

DRUGS (13)
  1. NEXIUM [Concomitant]
     Indication: GASTROOESOPHAGEAL REFLUX DISEASE
     Route: 048
  2. IBUPROFEN [Concomitant]
     Route: 048
  3. CELEXA [Concomitant]
     Indication: DYSTHYMIC DISORDER
     Dosage: 1 TABLET DAILY, FOR 30 DAYS
     Route: 048
  4. FISH OIL [Concomitant]
     Route: 048
  5. LISINOPRIL [Suspect]
     Route: 048
  6. HYDROCHLOROTHIAZIDE [Concomitant]
     Route: 048
  7. CELEXA [Concomitant]
     Indication: ANXIETY
     Dosage: 1 TABLET DAILY, FOR 30 DAYS
     Route: 048
  8. NORVASC [Concomitant]
     Route: 048
  9. ASPIRIN [Concomitant]
     Route: 048
  10. CARVEDILOL [Concomitant]
     Route: 048
  11. FLEXERIL [Concomitant]
     Route: 048
  12. METFORMIN HCL [Concomitant]
     Dosage: 1/2 TABLET BID
     Route: 048
  13. CRESTOR [Concomitant]
     Route: 048

REACTIONS (2)
  - HYPERSENSITIVITY [None]
  - PHARYNGEAL OEDEMA [None]
